FAERS Safety Report 4588960-X (Version None)
Quarter: 2005Q1

REPORT INFORMATION
  Report Type: 
  Country: None (occurrence: None)
  Receive Date: 20050125
  Receipt Date: 20041015
  Transmission Date: 20050727
  Serious: No
  Sender: FDA-Public Use
  Company Number: USA030741403

PATIENT
  Age: 77 Year
  Sex: Female
  Weight: 59 kg

DRUGS (6)
  1. FORTEO [Suspect]
     Indication: OSTEOPOROSIS
     Dates: start: 20030710, end: 20041013
  2. KEFLEX [Concomitant]
  3. SYNTHROID [Concomitant]
  4. PENTA-TRIAMTERENE HCTZ [Concomitant]
  5. ZOCOR [Concomitant]
  6. IBU [Concomitant]

REACTIONS (7)
  - ASTHENOPIA [None]
  - DIZZINESS [None]
  - INJECTION SITE PAIN [None]
  - LETHARGY [None]
  - NASOPHARYNGITIS [None]
  - SINUSITIS [None]
  - SOMNOLENCE [None]
